FAERS Safety Report 5637222-8 (Version None)
Quarter: 2008Q1

REPORT INFORMATION
  Report Type: 
  Country: None (occurrence: None)
  Receive Date: 20080220
  Receipt Date: 20080220
  Transmission Date: 20080703
  Serious: Yes (Hospitalization)
  Sender: FDA-Public Use
  Company Number: None

PATIENT
  Age: 75 Year
  Sex: Male

DRUGS (2)
  1. WARFARIN SODIUM [Suspect]
     Dosage: 2.5/5MG EVERY DAY PO
     Route: 048
     Dates: start: 20060907, end: 20070501
  2. KETOCONAZOLE [Suspect]
     Dosage: 400MG TID PO
     Route: 048
     Dates: start: 20070418, end: 20070501

REACTIONS (1)
  - HAEMOPTYSIS [None]
